FAERS Safety Report 8169930-1 (Version None)
Quarter: 2012Q1

REPORT INFORMATION
  Report Type: 
  Country: None (occurrence: None)
  Receive Date: 20120228
  Receipt Date: 20120228
  Transmission Date: 20120608
  Serious: Yes (Other)
  Sender: FDA-Public Use
  Company Number: None

PATIENT
  Age: 62 Year
  Sex: Female

DRUGS (1)
  1. XARELTO [Suspect]
     Dosage: 10 MG
     Route: 048
     Dates: start: 20111220, end: 20111221

REACTIONS (1)
  - INCISION SITE HAEMORRHAGE [None]
